FAERS Safety Report 9013280 (Version 1)
Quarter: 2013Q1

REPORT INFORMATION
  Report Type: Spontaneous
  Country: US (occurrence: None)
  Receive Date: 20130107
  Receipt Date: 20130107
  Transmission Date: 20140127
  Serious: Yes (Disabling, Other)
  Sender: FDA-Public Use
  Company Number: None

PATIENT
  Age: 6 Year
  Sex: Female
  Weight: 20.41 kg

DRUGS (2)
  1. ZAFIRLUKAST [Suspect]
     Route: 048
     Dates: start: 20120417, end: 20120715
  2. ZAFIRLUKAST [Suspect]
     Route: 048
     Dates: start: 20120417, end: 20120715

REACTIONS (9)
  - Tic [None]
  - Nausea [None]
  - Abdominal discomfort [None]
  - Food poisoning [None]
  - Anxiety [None]
  - Weight decreased [None]
  - Pallor [None]
  - Dark circles under eyes [None]
  - Panic reaction [None]
